FAERS Safety Report 7672250-2 (Version None)
Quarter: 2011Q3

REPORT INFORMATION
  Report Type: 
  Country: None (occurrence: None)
  Receive Date: 20110809
  Receipt Date: 20110727
  Transmission Date: 20111222
  Serious: No
  Sender: FDA-Public Use
  Company Number: US-ELI_LILLY_AND_COMPANY-US201107001443

PATIENT
  Age: 65 Year
  Sex: Female
  Weight: 55 kg

DRUGS (8)
  1. FORTEO [Suspect]
     Dosage: 20 UG, QD
     Route: 058
     Dates: end: 20110622
  2. PREDNISONE [Concomitant]
  3. FORTEO [Suspect]
     Indication: OSTEOPOROSIS
     Dosage: 20 UG, QD
     Route: 058
     Dates: start: 20110501
  4. CALCIUM CARBONATE [Concomitant]
     Dosage: UNK, QD
  5. FLUDROCORTISONACETAAT PCH [Concomitant]
  6. SYNTHROID [Concomitant]
  7. ASPIRIN [Concomitant]
  8. ZOCOR [Concomitant]

REACTIONS (2)
  - CALCIUM METABOLISM DISORDER [None]
  - BLOOD CALCIUM DECREASED [None]
